FAERS Safety Report 11457345 (Version 1)
Quarter: 2015Q3

REPORT INFORMATION
  Report Type: Spontaneous
  Country: US (occurrence: None)
  Receive Date: 20150902
  Receipt Date: 20150902
  Transmission Date: 20151125
  Serious: Yes (Hospitalization)
  Sender: FDA-Public Use
  Company Number: TPU2015-00434

PATIENT
  Age: 55 Year
  Sex: Male
  Weight: 103.42 kg

DRUGS (8)
  1. RUBBING ALCOHOL (ISOPROPANOL) [Concomitant]
  2. AMBIEN [Concomitant]
     Active Substance: ZOLPIDEM TARTRATE
  3. CYCLOBENZAPRINE (CYCLOBENZAPRINE) [Concomitant]
     Active Substance: CYCLOBENZAPRINE
  4. TYLENOL AND CODEINE (PANADEINE CO) [Concomitant]
  5. VOLTAREN GEL (DICLOFENAC) [Concomitant]
  6. BEE POLLEN (BEE POLLEN) [Concomitant]
  7. LIDODERM [Suspect]
     Active Substance: LIDOCAINE
     Indication: RHEUMATOID ARTHRITIS
     Dosage: 1 PLASTER, AS REQUIRED, TOPICAL
     Route: 061
     Dates: start: 2010, end: 2014
  8. METOPROLOL (METOPROLOL) [Concomitant]
     Active Substance: METOPROLOL

REACTIONS (23)
  - Glaucoma [None]
  - Sciatica [None]
  - Product adhesion issue [None]
  - Incorrect drug administration duration [None]
  - Intervertebral disc degeneration [None]
  - Hypoaesthesia [None]
  - Muscle injury [None]
  - Nightmare [None]
  - Concussion [None]
  - Pain [None]
  - Memory impairment [None]
  - Musculoskeletal stiffness [None]
  - Arthritis [None]
  - Vomiting [None]
  - Burning sensation [None]
  - Local swelling [None]
  - Sinus disorder [None]
  - Insomnia [None]
  - Musculoskeletal pain [None]
  - Hospitalisation [None]
  - Wrong technique in product usage process [None]
  - Visual impairment [None]
  - Body height decreased [None]

NARRATIVE: CASE EVENT DATE: 2010
